FAERS Safety Report 25050223 (Version 2)
Quarter: 2025Q1

REPORT INFORMATION
  Report Type: Spontaneous
  Country: US (occurrence: US)
  Receive Date: 20250307
  Receipt Date: 20250320
  Transmission Date: 20250409
  Serious: No
  Sender: BIOGEN
  Company Number: US-BIOGEN-2025BI01302796

PATIENT
  Sex: Female

DRUGS (1)
  1. ZURZUVAE [Suspect]
     Active Substance: ZURANOLONE
     Indication: Product used for unknown indication
     Dosage: 2X25MG TABLETS TO BE TAKEN IN THE EVENING
     Route: 050
     Dates: start: 202502

REACTIONS (2)
  - Amnesia [Recovered/Resolved with Sequelae]
  - Feeling abnormal [Recovered/Resolved with Sequelae]
